FAERS Safety Report 5696515-9 (Version None)
Quarter: 2008Q2

REPORT INFORMATION
  Report Type: 
  Country: None (occurrence: None)
  Receive Date: 20080408
  Receipt Date: 20080328
  Transmission Date: 20081010
  Serious: Yes (Hospitalization)
  Sender: FDA-Public Use
  Company Number: BR-JNJFOC-20080400528

PATIENT
  Age: 34 Year
  Sex: Male

DRUGS (1)
  1. CLADRIBINE [Suspect]
     Indication: HAIRY CELL LEUKAEMIA
     Route: 042

REACTIONS (3)
  - DRUG INEFFECTIVE [None]
  - GINGIVAL BLEEDING [None]
  - PYREXIA [None]
